FAERS Safety Report 20602394 (Version 2)
Quarter: 2022Q2

REPORT INFORMATION
  Report Type: Spontaneous
  Country: IR (occurrence: IR)
  Receive Date: 20220316
  Receipt Date: 20220408
  Transmission Date: 20220721
  Serious: Yes (Hospitalization, Other)
  Sender: FDA-Public Use
  Company Number: IR-LUPIN PHARMACEUTICALS INC.-2022-03507

PATIENT
  Age: 2 Year
  Sex: Male
  Weight: 10 kg

DRUGS (1)
  1. DONEPEZIL [Suspect]
     Active Substance: DONEPEZIL
     Indication: Accidental exposure to product by child
     Dosage: 10 MG (PILL)
     Route: 048
     Dates: start: 202006, end: 202006

REACTIONS (3)
  - Accidental exposure to product by child [Unknown]
  - Cholinergic syndrome [Recovered/Resolved]
  - Toxicity to various agents [Unknown]

NARRATIVE: CASE EVENT DATE: 20200601
